FAERS Safety Report 6213103-6 (Version None)
Quarter: 2009Q2

REPORT INFORMATION
  Report Type: 
  Country: None (occurrence: None)
  Receive Date: 20090603
  Receipt Date: 20090525
  Transmission Date: 20091009
  Serious: Yes (Death)
  Sender: FDA-Public Use
  Company Number: B0544051A

PATIENT
  Sex: Female

DRUGS (13)
  1. TRIZIVIR [Suspect]
     Indication: HIV INFECTION
     Route: 048
     Dates: start: 20050812, end: 20080406
  2. RETROVIR [Suspect]
     Indication: HIV INFECTION
     Route: 065
     Dates: start: 19970825, end: 19980518
  3. EPIVIR [Suspect]
     Indication: HIV INFECTION
     Route: 048
     Dates: start: 19970825, end: 19990927
  4. COMBIVIR [Suspect]
     Indication: HIV INFECTION
     Route: 065
     Dates: start: 20020829, end: 20041005
  5. CRIXIVAN [Suspect]
     Indication: HIV INFECTION
     Route: 065
     Dates: start: 19970825, end: 19980518
  6. VIREAD [Suspect]
     Indication: HIV INFECTION
     Route: 065
     Dates: start: 20020829, end: 20050812
  7. NORVIR [Suspect]
     Indication: HIV INFECTION
     Route: 065
     Dates: start: 20041005, end: 20050812
  8. REYATAZ [Suspect]
     Indication: HIV INFECTION
     Route: 065
     Dates: start: 20041005, end: 20050812
  9. VIRACEPT [Concomitant]
     Indication: HIV INFECTION
     Route: 065
     Dates: start: 19980518, end: 19990927
  10. ZERIT [Concomitant]
     Indication: HIV INFECTION
     Route: 065
     Dates: start: 19980518, end: 20020829
  11. SUSTIVA [Concomitant]
     Indication: HIV INFECTION
     Route: 065
     Dates: start: 19990927, end: 19991227
  12. VIDEX [Concomitant]
     Indication: HIV INFECTION
     Route: 065
     Dates: start: 19990927, end: 20020829
  13. FORTOVASE [Concomitant]
     Route: 065
     Dates: start: 20001108, end: 20001227

REACTIONS (3)
  - DEATH [None]
  - GASTROINTESTINAL DISORDER [None]
  - VIROLOGIC FAILURE [None]
